FAERS Safety Report 6148797-7 (Version None)
Quarter: 2009Q2

REPORT INFORMATION
  Report Type: 
  Country: None (occurrence: None)
  Receive Date: 20090408
  Receipt Date: 20090330
  Transmission Date: 20091009
  Serious: Yes (Other)
  Sender: FDA-Public Use
  Company Number: US-ABBOTT-09P-163-0565219-00

PATIENT
  Sex: Female
  Weight: 68.1 kg

DRUGS (7)
  1. HUMIRA [Suspect]
     Indication: RHEUMATOID ARTHRITIS
     Dosage: 40 MG EOW FOR APPROX 5 MONTHS
     Route: 058
     Dates: start: 20081001, end: 20090126
  2. DARVOCET [Concomitant]
     Indication: PAIN
  3. ARAVA [Concomitant]
     Indication: RHEUMATOID ARTHRITIS
  4. SONATA [Concomitant]
     Indication: SLEEP DISORDER THERAPY
  5. SONATA [Concomitant]
     Dosage: QD, PRN
  6. PREDNISONE [Concomitant]
     Indication: RHEUMATOID ARTHRITIS
  7. PREDNISONE [Concomitant]

REACTIONS (3)
  - ARTHRALGIA [None]
  - JOINT RANGE OF MOTION DECREASED [None]
  - TENDON INJURY [None]
